FAERS Safety Report 20957815 (Version 2)
Quarter: 2022Q3

REPORT INFORMATION
  Report Type: Other
  Country: JP (occurrence: JP)
  Receive Date: 20220614
  Receipt Date: 20220829
  Transmission Date: 20221027
  Serious: Yes (Other)
  Sender: FDA-Public Use
  Company Number: JP-CHUGAI-2021002936

PATIENT
  Age: 72 Year
  Sex: Female
  Weight: 49 kg

DRUGS (5)
  1. ENTRECTINIB [Suspect]
     Active Substance: ENTRECTINIB
     Indication: Non-small cell lung cancer
     Dosage: 600 MILLIGRAM, QD
     Route: 048
     Dates: start: 20210521, end: 20210525
  2. ENTRECTINIB [Suspect]
     Active Substance: ENTRECTINIB
     Dosage: 400 MILLIGRAM, QD
     Route: 048
     Dates: start: 20210529, end: 20210531
  3. ENTRECTINIB [Suspect]
     Active Substance: ENTRECTINIB
     Dosage: 200 MILLIGRAM, QD
     Route: 048
     Dates: start: 20210608, end: 20220411
  4. MAGNESIUM OXIDE [Concomitant]
     Active Substance: MAGNESIUM OXIDE
     Dosage: 330 MILLIGRAM, TID
     Route: 048
  5. MAGNESIUM OXIDE [Concomitant]
     Active Substance: MAGNESIUM OXIDE
     Dosage: 660 MILLIGRAM, TID
     Route: 048

REACTIONS (4)
  - Neutrophil count decreased [Recovering/Resolving]
  - Taste disorder [Recovering/Resolving]
  - Constipation [Recovering/Resolving]
  - Blood creatinine increased [Recovering/Resolving]

NARRATIVE: CASE EVENT DATE: 20210522
